FAERS Safety Report 8786974 (Version 2)
Quarter: 2012Q4

REPORT INFORMATION
  Report Type: 
  Country: DE (occurrence: DE)
  Receive Date: 20120914
  Receipt Date: 20121009
  Transmission Date: 20130627
  Serious: Yes (Death, Other)
  Sender: FDA-Public Use
  Company Number: DE-RANBAXY-2012RR-59949

PATIENT
  Age: 89 Year
  Sex: Male

DRUGS (17)
  1. ALFUZOSINE [Suspect]
     Indication: PRODUCT USED FOR UNKNOWN INDICATION
     Dosage: 10 mg/day
     Route: 065
  2. RISPERIDONE [Interacting]
     Indication: PRODUCT USED FOR UNKNOWN INDICATION
     Dosage: 1 mg/day
     Route: 065
  3. RISPERIDONE [Interacting]
     Dosage: 1.5 mg/day
  4. GALANTAMINE [Interacting]
     Indication: PRODUCT USED FOR UNKNOWN INDICATION
     Dosage: 16 mg/day
     Route: 065
  5. MELPERONE [Interacting]
     Indication: PRODUCT USED FOR UNKNOWN INDICATION
     Dosage: 25-50 mg, qid, as needed
     Route: 065
  6. MELPERONE [Interacting]
     Dosage: 250 mg/day
  7. HALOPERIDOL [Interacting]
     Indication: PRODUCT USED FOR UNKNOWN INDICATION
     Dosage: 5 mg/day
     Route: 065
  8. HALOPERIDOL [Interacting]
     Dosage: 3 mg/day
     Route: 065
  9. HALOPERIDOL [Interacting]
     Dosage: 2.5 mg/day
  10. LORAZEPAM [Concomitant]
     Indication: PRODUCT USED FOR UNKNOWN INDICATION
     Dosage: 2 mg
     Route: 065
  11. OXAZEPAM [Concomitant]
     Indication: INSOMNIA
     Dosage: 20 mg
     Route: 065
  12. OXAZEPAM [Concomitant]
     Indication: INSOMNIA
     Dosage: 15
  13. CAPTOPRIL [Concomitant]
     Indication: PRODUCT USED FOR UNKNOWN INDICATION
     Dosage: 50 mg
     Route: 065
  14. HYDROCHLOROTHIAZIDE [Concomitant]
     Indication: PRODUCT USED FOR UNKNOWN INDICATION
     Dosage: 25 mg
     Route: 065
  15. BISOPROLOL [Concomitant]
     Indication: PRODUCT USED FOR UNKNOWN INDICATION
     Dosage: 5 mg
     Route: 065
  16. ISOSORBIDE DINITRATE [Concomitant]
     Indication: PRODUCT USED FOR UNKNOWN INDICATION
     Dosage: 120 mg
     Route: 065
  17. ASPIRIN [Concomitant]
     Indication: PRODUCT USED FOR UNKNOWN INDICATION
     Dosage: 100 mg
     Route: 065

REACTIONS (2)
  - Sudden death [Fatal]
  - Drug interaction [Unknown]
